FAERS Safety Report 5657861-8 (Version None)
Quarter: 2008Q1

REPORT INFORMATION
  Report Type: 
  Country: None (occurrence: None)
  Receive Date: 20080310
  Receipt Date: 20080229
  Transmission Date: 20080703
  Serious: Yes (Other)
  Sender: FDA-Public Use
  Company Number: JP-MERCK-0802USA05635

PATIENT
  Age: 44 Year
  Sex: Male
  Weight: 82 kg

DRUGS (4)
  1. PROPECIA [Suspect]
     Indication: ANDROGENETIC ALOPECIA
     Route: 048
     Dates: start: 20071102, end: 20080201
  2. MAINTATE [Concomitant]
     Indication: HYPERTENSION
     Route: 048
  3. MICARDIS [Concomitant]
     Indication: HYPERTENSION
     Route: 048
  4. ATELEC [Concomitant]
     Indication: HYPERTENSION
     Route: 048

REACTIONS (3)
  - DERMATITIS [None]
  - RESIDUAL URINE [None]
  - TESTICULAR PAIN [None]
